FAERS Safety Report 4649783-6 (Version None)
Quarter: 2005Q2

REPORT INFORMATION
  Report Type: 
  Country: None (occurrence: None)
  Receive Date: 20050502
  Receipt Date: 20050422
  Transmission Date: 20051028
  Serious: Yes (Other)
  Sender: FDA-Public Use
  Company Number: PHEH2005US04690

PATIENT
  Age: 73 Year
  Sex: Male
  Weight: 64 kg

DRUGS (11)
  1. ZOMETA [Suspect]
     Indication: MULTIPLE MYELOMA
     Dosage: 4MG Q4WK
     Route: 042
     Dates: start: 20030501, end: 20050315
  2. VINCRISTINE [Concomitant]
  3. CYTOXAN [Concomitant]
  4. HYTRIN [Concomitant]
  5. LOPRESSOR [Concomitant]
  6. MONOPRIL [Concomitant]
  7. ARANESP [Concomitant]
     Dosage: 400 UNK
  8. ISORDIL [Concomitant]
  9. MELPHALAN [Concomitant]
     Dosage: 6 MG, BID
     Dates: start: 20020101, end: 20030101
  10. CARMUSTINE [Concomitant]
  11. PREDNISONE TABLETS USP (NGX) [Concomitant]
     Dosage: 40 MG, BID
     Dates: start: 20020101, end: 20030406

REACTIONS (3)
  - OSTEONECROSIS [None]
  - TOOTH EXTRACTION [None]
  - TOOTHACHE [None]
